FAERS Safety Report 8431490-5 (Version None)
Quarter: 2012Q2

REPORT INFORMATION
  Report Type: 
  Country: None (occurrence: None)
  Receive Date: 20120607
  Receipt Date: 20120607
  Transmission Date: 20120825
  Serious: Yes (Other)
  Sender: FDA-Public Use
  Company Number: None

PATIENT
  Sex: Female
  Weight: 71.6683 kg

DRUGS (1)
  1. DALIRESP [Suspect]
     Indication: OBSTRUCTIVE AIRWAYS DISORDER
     Dosage: 500 MG 1 X DAY ORAL
     Route: 048
     Dates: start: 20120509, end: 20120513

REACTIONS (9)
  - ABNORMAL FAECES [None]
  - ANXIETY [None]
  - EMOTIONAL DISORDER [None]
  - MOOD ALTERED [None]
  - MUSCLE SPASMS [None]
  - PRURITUS [None]
  - DYSPNOEA [None]
  - HEADACHE [None]
  - NAUSEA [None]
